FAERS Safety Report 25799295 (Version 1)
Quarter: 2025Q3

REPORT INFORMATION
  Report Type: Report from Study
  Country: US (occurrence: US)
  Receive Date: 20250913
  Receipt Date: 20250913
  Transmission Date: 20251021
  Serious: Yes (Other)
  Sender: ALEXION PHARMACEUTICALS
  Company Number: US-AstraZeneca-CH-00948704A

PATIENT
  Sex: Male
  Weight: 58.7 kg

DRUGS (1)
  1. ACALABRUTINIB [Suspect]
     Active Substance: ACALABRUTINIB
     Indication: Chronic lymphocytic leukaemia
     Dosage: 100 MILLIGRAM, BID
     Dates: start: 20250908

REACTIONS (3)
  - Biliary tract disorder [Recovering/Resolving]
  - Haemoglobin decreased [Recovering/Resolving]
  - Vomiting [Recovering/Resolving]
